FAERS Safety Report 8076995-4 (Version None)
Quarter: 2012Q1

REPORT INFORMATION
  Report Type: 
  Country: None (occurrence: None)
  Receive Date: 20120127
  Receipt Date: 20120124
  Transmission Date: 20120608
  Serious: Yes (Death, Hospitalization)
  Sender: FDA-Public Use
  Company Number: DE-GLAXOSMITHKLINE-B0775055A

PATIENT
  Sex: Female
  Weight: 67.2 kg

DRUGS (2)
  1. TOPOTECAN [Suspect]
     Indication: OVARIAN CANCER
     Dosage: 2.13MG PER DAY
     Route: 042
     Dates: start: 20111205, end: 20111209
  2. BLINDED TRIAL MEDICATION [Suspect]
     Indication: OVARIAN CANCER
     Route: 048
     Dates: start: 20111210, end: 20111219

REACTIONS (3)
  - GENERAL PHYSICAL HEALTH DETERIORATION [None]
  - NAUSEA [None]
  - CACHEXIA [None]
